FAERS Safety Report 13660531 (Version 1)
Quarter: 2017Q2

REPORT INFORMATION
  Report Type: Spontaneous
  Country: US (occurrence: US)
  Receive Date: 20170616
  Receipt Date: 20170616
  Transmission Date: 20170830
  Serious: Yes (Other)
  Sender: FDA-Public Use
  Company Number: US-AMGEN-USASP2017079168

PATIENT
  Sex: Female
  Weight: 12.5 kg

DRUGS (3)
  1. NPLATE [Suspect]
     Active Substance: ROMIPLOSTIM
     Dosage: 125 MCG, UNK
     Route: 058
     Dates: start: 20170512
  2. NPLATE [Suspect]
     Active Substance: ROMIPLOSTIM
     Indication: IMMUNE THROMBOCYTOPENIC PURPURA
     Dosage: 25 MCG, UNK
     Route: 058
     Dates: start: 20170331
  3. NPLATE [Suspect]
     Active Substance: ROMIPLOSTIM
     Dosage: 50 MCG, UNK
     Route: 058
     Dates: start: 20170414

REACTIONS (3)
  - Thrombocytopenia [Recovering/Resolving]
  - Off label use [Unknown]
  - Drug ineffective [Unknown]

NARRATIVE: CASE EVENT DATE: 2017
